FAERS Safety Report 6626759-0 (Version None)
Quarter: 2010Q1

REPORT INFORMATION
  Report Type: 
  Country: None (occurrence: None)
  Receive Date: 20100311
  Receipt Date: 20100302
  Transmission Date: 20100710
  Serious: Yes (Other)
  Sender: FDA-Public Use
  Company Number: US-BIOGENIDEC-2010BI007399

PATIENT
  Sex: Female
  Weight: 72 kg

DRUGS (2)
  1. TYSABRI [Suspect]
     Indication: MULTIPLE SCLEROSIS
     Route: 042
     Dates: start: 20081001
  2. TOPAMAX [Concomitant]
     Indication: MIGRAINE

REACTIONS (4)
  - ACOUSTIC NEUROMA [None]
  - NEPHROLITHIASIS [None]
  - PAIN [None]
  - SPLEEN DISORDER [None]
